FAERS Safety Report 13898350 (Version 4)
Quarter: 2018Q1

REPORT INFORMATION
  Report Type: Spontaneous
  Country: US (occurrence: US)
  Receive Date: 20170823
  Receipt Date: 20180201
  Transmission Date: 20180508
  Serious: Yes (Life-Threatening, Hospitalization, Other)
  Sender: FDA-Public Use
  Company Number: US-VISTAPHARM, INC.-VER201708-000366

PATIENT
  Age: 11 Month
  Sex: Male
  Weight: 11 kg

DRUGS (1)
  1. METHADONE [Suspect]
     Active Substance: METHADONE HYDROCHLORIDE
     Indication: PRODUCT USED FOR UNKNOWN INDICATION

REACTIONS (7)
  - Respiratory failure [Unknown]
  - Accidental exposure to product [Unknown]
  - Seizure [Recovered/Resolved]
  - Hyperinsulinaemic hypoglycaemia [Recovering/Resolving]
  - Respiratory tract infection [Unknown]
  - Hypotension [Recovering/Resolving]
  - Hypoglycaemia [Recovering/Resolving]
